FAERS Safety Report 14796193 (Version 2)
Quarter: 2018Q3

REPORT INFORMATION
  Report Type: Report from Study
  Country: US (occurrence: US)
  Receive Date: 20180423
  Receipt Date: 20180719
  Transmission Date: 20181010
  Serious: No
  Sender: FDA-Public Use
  Company Number: US-AMGEN-USASL2018004064

PATIENT
  Age: 72 Year
  Sex: Female
  Weight: 87.9 kg

DRUGS (30)
  1. REPATHA [Suspect]
     Active Substance: EVOLOCUMAB
     Indication: BLOOD CHOLESTEROL INCREASED
  2. CYCLOBENZAPRINE. [Concomitant]
     Active Substance: CYCLOBENZAPRINE
     Dosage: 10 MG, QD (0.5 TABLET BY ORAL ROUTE EVERY DAY AS NEEDED)
     Route: 048
  3. OMEGA?3 FISH OIL [Concomitant]
     Active Substance: FISH OIL\OMEGA-3 FATTY ACIDS
     Dosage: UNK UNK, QD (1 CAPSULE)
     Route: 048
  4. ACETAMINOPHEN PM [Concomitant]
     Active Substance: ACETAMINOPHEN\DIPHENHYDRAMINE HYDROCHLORIDE
     Dosage: UNK UNK, QD (1 TABLET, BEDTIME)
     Route: 048
  5. CALTRATE 600+D [Concomitant]
     Dosage: UNK UNK, QD (600 MG (1.500 MG)?800 UNIT)
     Route: 048
  6. OCUVITE [Concomitant]
     Active Substance: VITAMINS
     Dosage: 1 TABLET, QD (1,000 UNIT?200 MG?60 UNIT?2MG TABLET)
     Route: 048
  7. REPATHA [Suspect]
     Active Substance: EVOLOCUMAB
     Indication: TYPE V HYPERLIPIDAEMIA
  8. BIOTIN [Concomitant]
     Active Substance: BIOTIN
     Dosage: UNK UNK, QD
     Route: 048
  9. CARVEDILOL. [Concomitant]
     Active Substance: CARVEDILOL
     Dosage: 3.125 MG, (ONE TABLET TWICE A DAY WITH FOOD)
  10. PROBIOTIC 10 [Concomitant]
     Dosage: UNK UNK, QD (ONE CAPSULE)
     Route: 048
  11. VALACYCLOVIR [Concomitant]
     Active Substance: VALACYCLOVIR HYDROCHLORIDE
     Dosage: 500 MG, AS NECESSARY (1 TABLET)
     Route: 048
  12. REPATHA [Suspect]
     Active Substance: EVOLOCUMAB
     Indication: TYPE IIA HYPERLIPIDAEMIA
     Dosage: 140 MG/ML, Q2WK
     Route: 058
     Dates: start: 20170601
  13. FLUTICASONE. [Concomitant]
     Active Substance: FLUTICASONE
     Dosage: 50 MUG, QD (2 SPRAY BY INTRANASAL ROUTE 2 TIMES EVERY DAY IN EACH NOSTRIL)
     Route: 045
  14. NITROGLYCERIN. [Concomitant]
     Active Substance: NITROGLYCERIN
     Dosage: 0.2 MG/HR, APPLY 1 PATCH, REMOVE AT NIGHT FOR 10 TO 12 HOURS
     Route: 062
  15. PROTONIX [Concomitant]
     Active Substance: PANTOPRAZOLE SODIUM
     Dosage: 40 MG, QD (1 TABLET, DELAYED RELEASE)
     Route: 048
  16. BENZONATATE. [Concomitant]
     Active Substance: BENZONATATE
     Dosage: 100 MG, TID
     Route: 048
  17. CLONAZEPAM. [Concomitant]
     Active Substance: CLONAZEPAM
     Dosage: 0.5 MG, QD (AS NEEDED)
     Route: 048
  18. LIVALO [Concomitant]
     Active Substance: PITAVASTATIN CALCIUM
     Indication: TYPE V HYPERLIPIDAEMIA
     Dosage: 4 MG, QD
     Dates: start: 20171014
  19. ACYCLOVIR. [Concomitant]
     Active Substance: ACYCLOVIR
     Dosage: 5 %, Q3H (6 TIMES PER DAY)
  20. MUCINEX DM [Concomitant]
     Active Substance: DEXTROMETHORPHAN HYDROBROMIDE\GUAIFENESIN
     Dosage: UNK UNK, BID (1 TABLET, AS NECESSARY)
  21. REFRESH LIQUIGEL [Concomitant]
     Active Substance: CARBOXYMETHYLCELLULOSE SODIUM
     Dosage: 1 %, QD (ONE DROP IN EACH EYE DAILY)
  22. REFRESH TEARS [Concomitant]
     Active Substance: CARBOXYMETHYLCELLULOSE SODIUM
     Dosage: 0.5 %, TID
     Route: 047
  23. LEVOTHYROXINE. [Concomitant]
     Active Substance: LEVOTHYROXINE
  24. LYRICA [Concomitant]
     Active Substance: PREGABALIN
     Dosage: 150 MG, BID (1 CAPSULE)
     Route: 048
  25. PROAIR HFA [Concomitant]
     Active Substance: ALBUTEROL SULFATE
     Dosage: 90 MCG, AS NECESSARY (INHALE 2 PUFF BY INHALATION ROUTE EVERY 4 ? 6 HOURS AS NEEDED)
  26. ASPIR 81 [Concomitant]
     Dosage: 81 MG, QD
     Route: 048
  27. SAVELLA [Concomitant]
     Active Substance: MILNACIPRAN HYDROCHLORIDE
     Dosage: 50 MG, BID
     Route: 048
  28. TYLENOL [Concomitant]
     Active Substance: ACETAMINOPHEN
     Dosage: UNK, QH (2TABLET)
     Route: 048
  29. VITAMIN C [Concomitant]
     Active Substance: ASCORBIC ACID
     Dosage: UNK, QD (1 TABLET)
     Route: 048
  30. ZADITOR [Concomitant]
     Active Substance: KETOTIFEN FUMARATE
     Dosage: 0.025 %, BID
     Route: 047

REACTIONS (4)
  - Dizziness [Unknown]
  - Upper respiratory tract infection [Unknown]
  - Heart sounds abnormal [Unknown]
  - Drug effect incomplete [Unknown]

NARRATIVE: CASE EVENT DATE: 2017
